FAERS Safety Report 24809073 (Version 1)
Quarter: 2025Q1

REPORT INFORMATION
  Report Type: Spontaneous
  Country: US (occurrence: US)
  Receive Date: 20250106
  Receipt Date: 20250106
  Transmission Date: 20250408
  Serious: Yes (Death, Hospitalization, Other)
  Sender: APOTEX
  Company Number: US-APOTEX-2024AP020388

PATIENT
  Age: 55 Year
  Sex: Female

DRUGS (3)
  1. ZONISAMIDE [Suspect]
     Active Substance: ZONISAMIDE
     Indication: Weight decreased
     Route: 065
  2. CYCLOSPORINE [Suspect]
     Active Substance: CYCLOSPORINE
     Indication: Immunosuppression
     Route: 065
  3. PREDNISONE [Suspect]
     Active Substance: PREDNISONE
     Indication: Immunosuppression
     Route: 065

REACTIONS (6)
  - Pneumonia [Fatal]
  - Septic shock [Fatal]
  - Vanishing bile duct syndrome [Not Recovered/Not Resolved]
  - Off label use [Unknown]
  - Drug-induced liver injury [Recovering/Resolving]
  - Drug reaction with eosinophilia and systemic symptoms [Unknown]
